FAERS Safety Report 8327682-6 (Version None)
Quarter: 2012Q2

REPORT INFORMATION
  Report Type: 
  Country: None (occurrence: None)
  Receive Date: 20120502
  Receipt Date: 20120418
  Transmission Date: 20120825
  Serious: Yes (Hospitalization)
  Sender: FDA-Public Use
  Company Number: CN-JNJFOC-20110406880

PATIENT
  Sex: Female

DRUGS (2)
  1. RISPERIDONE [Suspect]
     Indication: SCHIZOPHRENIA
     Route: 048
     Dates: start: 20110224
  2. RISPERIDONE [Suspect]
     Route: 048
     Dates: end: 20110305

REACTIONS (5)
  - FAECAL INCONTINENCE [None]
  - VISION BLURRED [None]
  - URINARY INCONTINENCE [None]
  - MENSTRUATION DELAYED [None]
  - HOSPITALISATION [None]
